FAERS Safety Report 6269998-3 (Version None)
Quarter: 2009Q3

REPORT INFORMATION
  Report Type: 
  Country: None (occurrence: None)
  Receive Date: 20090716
  Receipt Date: 20090707
  Transmission Date: 20100115
  Serious: Yes (Hospitalization, Other)
  Sender: FDA-Public Use
  Company Number: US-BAYER-200919076NA

PATIENT
  Age: 21 Year
  Sex: Female

DRUGS (1)
  1. MIRENA [Suspect]
     Indication: CONTRACEPTION
     Dosage: CONTINUOUS
     Route: 015
     Dates: start: 20080818

REACTIONS (5)
  - ABDOMINAL PAIN [None]
  - IUD MIGRATION [None]
  - PANCREATITIS [None]
  - PREGNANCY WITH CONTRACEPTIVE DEVICE [None]
  - VOMITING [None]
